FAERS Safety Report 4834939-X (Version None)
Quarter: 2005Q4

REPORT INFORMATION
  Report Type: 
  Country: None (occurrence: None)
  Receive Date: 20051122
  Receipt Date: 20051031
  Transmission Date: 20060501
  Serious: Yes (Disabling)
  Sender: FDA-Public Use
  Company Number: US-BRISTOL-MYERS SQUIBB COMPANY-13162276

PATIENT
  Age: 13 Year
  Sex: Male
  Weight: 52 kg

DRUGS (11)
  1. ABILIFY [Suspect]
     Indication: AUTISM SPECTRUM DISORDER
     Route: 048
     Dates: start: 20050901
  2. ABILIFY [Suspect]
     Indication: ANXIETY
     Route: 048
     Dates: start: 20050901
  3. ABILIFY [Suspect]
     Indication: ABNORMAL BEHAVIOUR
     Route: 048
     Dates: start: 20050901
  4. ABILIFY [Suspect]
     Indication: AUTISM SPECTRUM DISORDER
     Route: 048
     Dates: start: 20050401, end: 20050801
  5. ABILIFY [Suspect]
     Indication: ANXIETY
     Route: 048
     Dates: start: 20050401, end: 20050801
  6. ABILIFY [Suspect]
     Indication: ABNORMAL BEHAVIOUR
     Route: 048
     Dates: start: 20050401, end: 20050801
  7. CONCERTA [Concomitant]
  8. STRATTERA [Concomitant]
  9. RITALIN [Concomitant]
  10. DDAVP [Concomitant]
  11. TOFRANIL [Concomitant]

REACTIONS (3)
  - FAECAL INCONTINENCE [None]
  - SEDATION [None]
  - URINARY INCONTINENCE [None]
